FAERS Safety Report 7544642-3 (Version None)
Quarter: 2011Q2

REPORT INFORMATION
  Report Type: 
  Country: None (occurrence: None)
  Receive Date: 20110614
  Receipt Date: 20110602
  Transmission Date: 20111010
  Serious: No
  Sender: FDA-Public Use
  Company Number: US-BIOGENIDEC-2011BI008728

PATIENT
  Age: 54 Year
  Sex: Female

DRUGS (12)
  1. ADDERALL 10 [Concomitant]
     Indication: FATIGUE
  2. MUSCLE RELAXANTS [Concomitant]
     Indication: MUSCLE SPASMS
  3. TYSABRI [Suspect]
     Indication: MULTIPLE SCLEROSIS
     Route: 042
     Dates: start: 20101210, end: 20101201
  4. PAIN MEDICATION (NOS) [Concomitant]
     Indication: PAIN
  5. WELLBUTRIN [Concomitant]
     Indication: DEPRESSION
  6. WELLBUTRIN [Concomitant]
     Indication: FATIGUE
  7. EFFEXOR [Concomitant]
     Indication: FATIGUE
  8. TYSABRI [Suspect]
     Route: 042
     Dates: start: 20110201, end: 20110201
  9. TYSABRI [Suspect]
     Route: 042
  10. BACLOFEN [Concomitant]
     Indication: MUSCLE SPASMS
  11. ZANAFLEX [Concomitant]
     Indication: MUSCLE SPASMS
  12. EFFEXOR [Concomitant]
     Indication: DEPRESSION

REACTIONS (16)
  - MULTIPLE ALLERGIES [None]
  - BACK PAIN [None]
  - GAIT DISTURBANCE [None]
  - GENERAL SYMPTOM [None]
  - FATIGUE [None]
  - MYALGIA [None]
  - LIMB INJURY [None]
  - NONSPECIFIC REACTION [None]
  - NASOPHARYNGITIS [None]
  - MUSCLE SPASMS [None]
  - PAIN [None]
  - INSOMNIA [None]
  - CONTUSION [None]
  - MUSCULOSKELETAL STIFFNESS [None]
  - SINUSITIS [None]
  - DYSSTASIA [None]
